FAERS Safety Report 6841164-X (Version None)
Quarter: 2010Q3

REPORT INFORMATION
  Report Type: 
  Country: None (occurrence: None)
  Receive Date: 20100714
  Receipt Date: 20070626
  Transmission Date: 20110219
  Serious: No
  Sender: FDA-Public Use
  Company Number: US-PFIZER INC-2007053804

PATIENT
  Sex: Female
  Weight: 72.7 kg

DRUGS (3)
  1. CHANTIX [Suspect]
     Indication: SMOKING CESSATION THERAPY
     Route: 048
     Dates: start: 20070301
  2. BENICAR [Concomitant]
     Indication: BLOOD PRESSURE
  3. LOVASTATIN [Concomitant]
     Indication: BLOOD CHOLESTEROL
     Dates: end: 20070625

REACTIONS (4)
  - DEPRESSION [None]
  - INSOMNIA [None]
  - THINKING ABNORMAL [None]
  - WEIGHT INCREASED [None]
